FAERS Safety Report 5231172-7 (Version None)
Quarter: 2007Q1

REPORT INFORMATION
  Report Type: 
  Country: None (occurrence: None)
  Receive Date: 20070206
  Receipt Date: 20070125
  Transmission Date: 20070707
  Serious: Yes (Hospitalization)
  Sender: FDA-Public Use
  Company Number: US-ELI_LILLY_AND_COMPANY-US200701005024

PATIENT
  Age: 34 Year
  Sex: Male

DRUGS (9)
  1. STRATTERA [Suspect]
     Indication: ATTENTION DEFICIT/HYPERACTIVITY DISORDER
     Dosage: 60 MG, DAILY (1/D)
  2. STRATTERA [Suspect]
     Dosage: 25 MG, DAILY (1/D)
  3. COREG [Concomitant]
     Dosage: 12.5 MG, 2/D
  4. DIOVAN [Concomitant]
     Dosage: 40 MG, 2/D
  5. LASIX [Concomitant]
     Dosage: 40 MG, 2/D
  6. LASIX [Concomitant]
     Dosage: 20 MG, 2/D
  7. K-DUR 10 [Concomitant]
     Dosage: 10 MEQ, 2/D
  8. ALLOPURINOL SODIUM [Concomitant]
     Dosage: UNK MG, 2/D
  9. SPIRONOLACTONE [Concomitant]
     Dosage: UNK MG, UNK

REACTIONS (1)
  - VENTRICULAR TACHYCARDIA [None]
